FAERS Safety Report 4514406-3 (Version None)
Quarter: 2004Q4

REPORT INFORMATION
  Report Type: 
  Country: None (occurrence: None)
  Receive Date: 20041130
  Receipt Date: 20041123
  Transmission Date: 20050328
  Serious: Yes (Life-Threatening, Hospitalization, Disabling)
  Sender: FDA-Public Use
  Company Number: US-MERCK-0411USA03852

PATIENT
  Age: 81 Year
  Sex: Female

DRUGS (7)
  1. VIOXX [Suspect]
     Indication: ARTHRITIS
     Route: 048
     Dates: start: 20020501, end: 20040930
  2. CHLORDIAZEPOXIDE [Concomitant]
     Route: 065
  3. ECOTRIN [Concomitant]
     Route: 065
  4. PLAVIX [Concomitant]
     Route: 065
  5. SINGULAIR [Concomitant]
     Route: 048
  6. FOSAMAX [Concomitant]
     Route: 048
  7. PULMICORT [Concomitant]
     Route: 065

REACTIONS (1)
  - CARDIAC DISORDER [None]
